FAERS Safety Report 25460495 (Version 2)
Quarter: 2025Q2

REPORT INFORMATION
  Report Type: Spontaneous
  Country: US (occurrence: US)
  Receive Date: 20250620
  Receipt Date: 20250630
  Transmission Date: 20250717
  Serious: Yes (Other)
  Sender: Suave Brands
  Company Number: US-SUAVE-2025-US-027655

PATIENT
  Age: 60 Year
  Sex: Female
  Weight: 115.67 kg

DRUGS (3)
  1. ALUMINUM ZIRCONIUM TETRACHLOROHYDREX GLY [Suspect]
     Active Substance: ALUMINUM ZIRCONIUM TETRACHLOROHYDREX GLY
     Indication: Product used for unknown indication
     Route: 061
     Dates: start: 202412, end: 20250525
  2. ALUMINUM ZIRCONIUM TETRACHLOROHYDREX GLY [Suspect]
     Active Substance: ALUMINUM ZIRCONIUM TETRACHLOROHYDREX GLY
     Indication: Product used for unknown indication
     Route: 061
     Dates: start: 2024, end: 20250525
  3. unspecified medication for hypertension [Concomitant]

REACTIONS (3)
  - Furuncle [Recovered/Resolved]
  - Hypersensitivity [Recovered/Resolved]
  - Bacterial infection [Recovered/Resolved]

NARRATIVE: CASE EVENT DATE: 20250525
